FAERS Safety Report 7758840-7 (Version None)
Quarter: 2011Q3

REPORT INFORMATION
  Report Type: 
  Country: None (occurrence: None)
  Receive Date: 20110919
  Receipt Date: 20110915
  Transmission Date: 20111222
  Serious: No
  Sender: FDA-Public Use
  Company Number: US-BAYER-2011-087053

PATIENT
  Age: 45 Year
  Sex: Female

DRUGS (2)
  1. MIRENA [Suspect]
     Indication: MENORRHAGIA
  2. MIRENA [Suspect]
     Indication: CONTRACEPTION
     Dosage: 20 MCG/DAY
     Dates: start: 20110621, end: 20110912

REACTIONS (3)
  - DEVICE EXPULSION [None]
  - MENORRHAGIA [None]
  - DYSMENORRHOEA [None]
